FAERS Safety Report 4535296-9 (Version None)
Quarter: 2004Q4

REPORT INFORMATION
  Report Type: 
  Country: None (occurrence: None)
  Receive Date: 20041214
  Receipt Date: 20040927
  Transmission Date: 20050328
  Serious: No
  Sender: FDA-Public Use
  Company Number: 2004237515US

PATIENT
  Age: 43 Year
  Sex: Female
  Weight: 44.9 kg

DRUGS (2)
  1. BEXTRA [Suspect]
     Indication: PAIN
     Dosage: SEE IMAGE
     Route: 048
     Dates: start: 20030701
  2. NEURONTIN [Concomitant]

REACTIONS (4)
  - FLUID RETENTION [None]
  - JOINT SWELLING [None]
  - NECK PAIN [None]
  - WEIGHT INCREASED [None]
